FAERS Safety Report 4595620-8 (Version None)
Quarter: 2005Q1

REPORT INFORMATION
  Report Type: 
  Country: None (occurrence: None)
  Receive Date: 20050302
  Receipt Date: 20050222
  Transmission Date: 20050727
  Serious: Yes (Hospitalization)
  Sender: FDA-Public Use
  Company Number: PHNR2005AU00586

PATIENT
  Sex: Female

DRUGS (1)
  1. LAMISIL [Suspect]
     Dates: start: 20040101

REACTIONS (2)
  - NECROTISING FASCIITIS [None]
  - SKIN ULCER [None]
